FAERS Safety Report 21033528 (Version 10)
Quarter: 2022Q4

REPORT INFORMATION
  Report Type: Report from Study
  Country: US (occurrence: US)
  Receive Date: 20220701
  Receipt Date: 20221001
  Transmission Date: 20230113
  Serious: Yes (Hospitalization)
  Sender: FDA-Public Use
  Company Number: US-NOVARTISTESTPH-NVSC2022US150428

PATIENT
  Age: 65 Year
  Sex: Male
  Weight: 102.94 kg

DRUGS (6)
  1. TREPROSTINIL [Suspect]
     Active Substance: TREPROSTINIL
     Indication: Pulmonary arterial hypertension
     Dosage: 26 NG/KG/MIN, CONT
     Route: 042
     Dates: start: 20220620
  2. TREPROSTINIL [Suspect]
     Active Substance: TREPROSTINIL
     Dosage: 20 NG/KG/MIN, CONT
     Route: 042
     Dates: start: 20220621
  3. TREPROSTINIL [Suspect]
     Active Substance: TREPROSTINIL
     Dosage: 27 NG/KG/MIN, CONT
     Route: 042
  4. TREPROSTINIL [Suspect]
     Active Substance: TREPROSTINIL
     Dosage: 36 NG/KG/MIN, CONT
     Route: 042
  5. REMODULIN [Suspect]
     Active Substance: TREPROSTINIL
     Indication: Pulmonary arterial hypertension
     Dosage: 0.016 UG/KG, CONT
     Route: 042
     Dates: start: 20220502, end: 20220620
  6. TADALAFIL [Concomitant]
     Active Substance: TADALAFIL
     Indication: Product used for unknown indication
     Dosage: UNK
     Route: 065

REACTIONS (12)
  - Pulmonary oedema [Unknown]
  - Fluid retention [Unknown]
  - Dyspnoea [Not Recovered/Not Resolved]
  - Skin irritation [Unknown]
  - Skin weeping [Unknown]
  - Skin exfoliation [Unknown]
  - Pruritus [Unknown]
  - Diarrhoea [Not Recovered/Not Resolved]
  - Headache [Unknown]
  - Pain in jaw [Not Recovered/Not Resolved]
  - Catheter site pruritus [Recovering/Resolving]
  - Catheter site swelling [Recovered/Resolved]

NARRATIVE: CASE EVENT DATE: 20220601
